FAERS Safety Report 7684157-5 (Version None)
Quarter: 2011Q3

REPORT INFORMATION
  Report Type: 
  Country: None (occurrence: None)
  Receive Date: 20110815
  Receipt Date: 20110804
  Transmission Date: 20111222
  Serious: No
  Sender: FDA-Public Use
  Company Number: US-BAYER-2011-069656

PATIENT
  Sex: Female

DRUGS (2)
  1. IBUPROFEN [Concomitant]
     Indication: ABDOMINAL PAIN
  2. MIRENA [Suspect]
     Indication: PRODUCT USED FOR UNKNOWN INDICATION
     Route: 015

REACTIONS (3)
  - ABDOMINAL PAIN [None]
  - ACNE [None]
  - HEADACHE [None]
